FAERS Safety Report 8432412-3 (Version None)
Quarter: 2012Q2

REPORT INFORMATION
  Report Type: 
  Country: None (occurrence: None)
  Receive Date: 20120613
  Receipt Date: 20120611
  Transmission Date: 20120825
  Serious: Yes (Death)
  Sender: FDA-Public Use
  Company Number: BR-PFIZER INC-2012141009

PATIENT
  Age: 63 Year
  Sex: Male

DRUGS (2)
  1. SUTENT [Suspect]
     Indication: NEUROENDOCRINE TUMOUR
     Dosage: 50 MG (ONE CAPSULE), 1X/DAY
     Route: 048
     Dates: start: 20120314, end: 20120405
  2. TENSALIV [Concomitant]
     Dosage: 10MG (ONE TABLET) IN THE MORNING AND 5MG (ONE TABLET) AT NIGHT

REACTIONS (2)
  - DEATH [None]
  - HYPOPHAGIA [None]
